FAERS Safety Report 15145195 (Version 1)
Quarter: 2018Q3

REPORT INFORMATION
  Report Type: Other
  Country: US (occurrence: US)
  Receive Date: 20180713
  Receipt Date: 20180713
  Transmission Date: 20181010
  Serious: No
  Sender: FDA-Public Use
  Company Number: US-INTERCEPT-PMOCA2017000696

PATIENT

DRUGS (13)
  1. PREMARIN [Concomitant]
     Active Substance: ESTROGENS, CONJUGATED
     Dosage: 0.625 MCG, QD
     Route: 067
     Dates: start: 20140904
  2. OCALIVA [Suspect]
     Active Substance: OBETICHOLIC ACID
     Indication: PRIMARY BILIARY CHOLANGITIS
     Dosage: 5 MG, QD
     Route: 048
     Dates: start: 20170706, end: 20170719
  3. VITAMIN A                          /00056001/ [Concomitant]
     Active Substance: RETINOL
     Dosage: 10000 UNK, QD
     Route: 048
     Dates: start: 20171211
  4. AMLODIPINE BESYLATE. [Concomitant]
     Active Substance: AMLODIPINE BESYLATE
     Indication: HYPERTENSION
     Dosage: 5 MG, QD
     Route: 048
     Dates: start: 20140904
  5. LEVOTHYROXINE SODIUM. [Concomitant]
     Active Substance: LEVOTHYROXINE SODIUM
     Dosage: 100 MCG, QD
     Route: 048
     Dates: start: 20140904
  6. URSODIOL. [Concomitant]
     Active Substance: URSODIOL
     Dosage: 500 MG, BID
     Route: 048
     Dates: start: 201708, end: 201712
  7. VITAMIN E [Concomitant]
     Active Substance: .ALPHA.-TOCOPHEROL
     Dosage: 400 UNK, UNK
     Route: 048
  8. CLOBETASOL PROPIONATE. [Concomitant]
     Active Substance: CLOBETASOL PROPIONATE
     Dosage: 0.05 %, BID
     Route: 061
     Dates: start: 20140904
  9. VITAMIN D3 [Concomitant]
     Active Substance: CHOLECALCIFEROL
  10. LUTEIN [Concomitant]
     Active Substance: LUTEIN
     Dosage: 20 MG, UNK
     Route: 048
  11. MINOCYCLINE HCL [Concomitant]
     Active Substance: MINOCYCLINE HYDROCHLORIDE
     Dosage: 100 MG, QD
     Route: 048
     Dates: start: 20140904
  12. OCALIVA [Suspect]
     Active Substance: OBETICHOLIC ACID
     Dosage: 5 MG, QD
     Dates: start: 201708, end: 20171211
  13. LISINOPRIL. [Concomitant]
     Active Substance: LISINOPRIL
     Dosage: 20 MG, BID
     Route: 048
     Dates: start: 20140825

REACTIONS (12)
  - Nail discolouration [Unknown]
  - Musculoskeletal chest pain [Unknown]
  - Pruritus [Not Recovered/Not Resolved]
  - Skin ulcer [Unknown]
  - Insomnia [Unknown]
  - Bradyphrenia [Unknown]
  - Blood alkaline phosphatase increased [Unknown]
  - Somnolence [Unknown]
  - Cognitive disorder [Unknown]
  - Skin discolouration [Unknown]
  - Fatigue [Not Recovered/Not Resolved]
  - Acne [Unknown]

NARRATIVE: CASE EVENT DATE: 2017
